FAERS Safety Report 6541171-0 (Version None)
Quarter: 2010Q1

REPORT INFORMATION
  Report Type: 
  Country: None (occurrence: None)
  Receive Date: 20100118
  Receipt Date: 20100115
  Transmission Date: 20100710
  Serious: Yes (Other)
  Sender: FDA-Public Use
  Company Number: A0839764A

PATIENT
  Age: 63 Year
  Sex: Female
  Weight: 56 kg

DRUGS (4)
  1. MELPHALAN [Suspect]
     Indication: AMYLOIDOSIS
     Dosage: 50MGM2 PER DAY
     Dates: start: 20091228, end: 20091229
  2. VELCADE [Suspect]
     Indication: AMYLOIDOSIS
  3. DEXAMETHASONE [Suspect]
     Indication: AMYLOIDOSIS
  4. DIURETICS [Concomitant]

REACTIONS (1)
  - PRESYNCOPE [None]
